FAERS Safety Report 6209160-3 (Version None)
Quarter: 2009Q2

REPORT INFORMATION
  Report Type: 
  Country: None (occurrence: None)
  Receive Date: 20090529
  Receipt Date: 20090526
  Transmission Date: 20091009
  Serious: No
  Sender: FDA-Public Use
  Company Number: US-B.I. PHARMACEUTICALS,INC./RIDGEFIELD-2009-BP-06525BP

PATIENT
  Age: 86 Year
  Sex: Female

DRUGS (2)
  1. MIRAPEX [Suspect]
     Indication: PARKINSON'S DISEASE
     Dosage: .75MG
     Route: 048
     Dates: start: 20080301, end: 20090301
  2. MIRAPEX [Suspect]
     Dosage: .75MG
     Route: 048
     Dates: start: 20090401

REACTIONS (3)
  - DYSPNOEA [None]
  - GAIT DISTURBANCE [None]
  - TREMOR [None]
